FAERS Safety Report 21837763 (Version 5)
Quarter: 2023Q2

REPORT INFORMATION
  Report Type: Report from Study
  Country: US (occurrence: US)
  Receive Date: 20230109
  Receipt Date: 20230613
  Transmission Date: 20230722
  Serious: Yes (Other)
  Sender: FDA-Public Use
  Company Number: US-ABBVIE-4246987

PATIENT
  Age: 46 Year
  Sex: Male

DRUGS (4)
  1. SKYRIZI [Suspect]
     Active Substance: RISANKIZUMAB-RZAA
     Indication: Crohn^s disease
     Dosage: MAINTENANCE DOSE 360 MG/ 2.4 ML
     Route: 058
     Dates: start: 20221221
  2. SKYRIZI [Suspect]
     Active Substance: RISANKIZUMAB-RZAA
     Indication: Crohn^s disease
     Dosage: WEEK 0; 600 MG/ 10 ML
     Route: 058
     Dates: start: 202209, end: 202209
  3. SKYRIZI [Suspect]
     Active Substance: RISANKIZUMAB-RZAA
     Indication: Crohn^s disease
     Dosage: WEEK 4; 600 MG/ 10 ML
     Route: 058
     Dates: start: 202210, end: 202210
  4. SKYRIZI [Suspect]
     Active Substance: RISANKIZUMAB-RZAA
     Indication: Crohn^s disease
     Dosage: 600 MG/ 10 ML?WEEK 8?FIRST ADMIN DATE: 2022?LAST ADMIN DATE: 2022
     Route: 058

REACTIONS (11)
  - Stomal hernia [Unknown]
  - Increased appetite [Recovered/Resolved]
  - Diarrhoea [Unknown]
  - COVID-19 [Recovering/Resolving]
  - Urinary tract infection [Recovered/Resolved]
  - Influenza like illness [Unknown]
  - Stoma creation [Unknown]
  - Fistula [Unknown]
  - Anaemia [Recovered/Resolved]
  - Haemorrhage [Unknown]
  - Wound dehiscence [Unknown]

NARRATIVE: CASE EVENT DATE: 20221209
